FAERS Safety Report 17823126 (Version 1)
Quarter: 2020Q2

REPORT INFORMATION
  Report Type: Spontaneous
  Country: JP (occurrence: JP)
  Receive Date: 20200526
  Receipt Date: 20200526
  Transmission Date: 20200714
  Serious: Yes (Death)
  Sender: FDA-Public Use
  Company Number: PHJP2018JP014345

PATIENT
  Age: 87 Year
  Sex: Male

DRUGS (2)
  1. TAFINLAR [Suspect]
     Active Substance: DABRAFENIB MESYLATE
     Indication: LUNG NEOPLASM MALIGNANT
     Dosage: 300 MG, UNK
     Route: 048
     Dates: start: 20180719, end: 201903
  2. MEKINIST [Suspect]
     Active Substance: TRAMETINIB DIMETHYL SULFOXIDE
     Indication: LUNG NEOPLASM MALIGNANT
     Dosage: 2 MG, UNK
     Route: 048
     Dates: start: 20180719, end: 201903

REACTIONS (2)
  - Marasmus [Fatal]
  - Decreased appetite [Unknown]

NARRATIVE: CASE EVENT DATE: 20180723
